FAERS Safety Report 5532740-5 (Version None)
Quarter: 2007Q4

REPORT INFORMATION
  Report Type: 
  Country: None (occurrence: None)
  Receive Date: 20071204
  Receipt Date: 20071128
  Transmission Date: 20080405
  Serious: Yes (Other)
  Sender: FDA-Public Use
  Company Number: PHNU2007DE03223

PATIENT
  Sex: Male

DRUGS (4)
  1. LIORESAL [Suspect]
     Dosage: 5 MG, QD
     Route: 048
  2. ANGIONORM [Concomitant]
  3. BERLINSULIN [Concomitant]
     Indication: DIABETES MELLITUS
  4. PANZYTRAT [Concomitant]

REACTIONS (1)
  - HYPOGLYCAEMIA [None]
